FAERS Safety Report 18207555 (Version 1)
Quarter: 2020Q3

REPORT INFORMATION
  Report Type: Spontaneous
  Country: US (occurrence: US)
  Receive Date: 20200828
  Receipt Date: 20200828
  Transmission Date: 20201103
  Serious: Yes (Hospitalization)
  Sender: FDA-Public Use
  Company Number: None

PATIENT
  Age: 24 Year
  Sex: Male
  Weight: 79.2 kg

DRUGS (8)
  1. METHOTREXATE. [Suspect]
     Active Substance: METHOTREXATE
     Dates: end: 20200812
  2. DAUNORUBICIN?O MG [Suspect]
     Active Substance: DAUNORUBICIN HYDROCHLORIDE
     Dates: end: 20200715
  3. CYTARABINE 1270 MG [Suspect]
     Active Substance: CYTARABINE
     Dates: end: 20200809
  4. ONCASPAR [Suspect]
     Active Substance: PEGASPARGASE
  5. PREDNISOLONE?0MG [Suspect]
     Active Substance: PREDNISOLONE SODIUM PHOSPHATE
     Dates: end: 20200720
  6. MERCAPTOPURINE 1650 MG [Suspect]
     Active Substance: MERCAPTOPURINE
     Dates: end: 20200811
  7. VINCRISTINE SULFATE 2MG [Suspect]
     Active Substance: VINCRISTINE SULFATE
     Dates: end: 20200812
  8. CYCLOPHOSPHAMI 2000 MG [Suspect]
     Active Substance: CYCLOPHOSPHAMIDE
     Dates: end: 20200729

REACTIONS (5)
  - Disorientation [None]
  - Toxicity to various agents [None]
  - Posterior reversible encephalopathy syndrome [None]
  - Mental status changes [None]
  - Aphasia [None]

NARRATIVE: CASE EVENT DATE: 20200817
